FAERS Safety Report 4450393-4 (Version None)
Quarter: 2004Q3

REPORT INFORMATION
  Report Type: 
  Country: None (occurrence: None)
  Receive Date: 20040914
  Receipt Date: 20040901
  Transmission Date: 20050211
  Serious: Yes (Other)
  Sender: FDA-Public Use
  Company Number: K200401347

PATIENT
  Age: 39 Year
  Sex: Female

DRUGS (1)
  1. NORDETTE-21 [Suspect]
     Dosage: ORAL
     Route: 048

REACTIONS (6)
  - DERMATITIS [None]
  - HEPATIC ADENOMA [None]
  - NICKEL SENSITIVITY [None]
  - NUCLEAR MAGNETIC RESONANCE IMAGING ABNORMAL [None]
  - PELIOSIS HEPATIS [None]
  - SKIN TEST POSITIVE [None]
